FAERS Safety Report 5951351-0 (Version None)
Quarter: 2008Q4

REPORT INFORMATION
  Report Type: 
  Country: None (occurrence: None)
  Receive Date: 20081113
  Receipt Date: 20081104
  Transmission Date: 20090506
  Serious: Yes (Death, Other)
  Sender: FDA-Public Use
  Company Number: US-PURDUE-USA_2008_0034663

PATIENT
  Age: 50 Year
  Sex: Male
  Weight: 100 kg

DRUGS (2)
  1. OXYCONTIN [Suspect]
     Indication: LUMBAR RADICULOPATHY
     Dosage: 400 MG, DAILY
  2. PERCOCET [Concomitant]
     Indication: BREAKTHROUGH PAIN

REACTIONS (2)
  - COMPLETED SUICIDE [None]
  - DRUG ABUSE [None]
